FAERS Safety Report 20180784 (Version 2)
Quarter: 2021Q4

REPORT INFORMATION
  Report Type: Spontaneous
  Country: FR (occurrence: FR)
  Receive Date: 20211214
  Receipt Date: 20211217
  Transmission Date: 20220303
  Serious: Yes (Death)
  Sender: FDA-Public Use
  Company Number: None

PATIENT
  Age: 91 Year
  Sex: Female
  Weight: 66 kg

DRUGS (4)
  1. BISOPROLOL FUMARATE [Suspect]
     Active Substance: BISOPROLOL FUMARATE
     Indication: Angina pectoris
     Dosage: 1 DOSAGE FORM,1.25 MG / JOUR
     Route: 048
     Dates: end: 20211014
  2. KARDEGIC [Suspect]
     Active Substance: ASPIRIN DL-LYSINE
     Indication: Angina pectoris
     Dosage: 100 MILLIGRAM (100 MG / JOUR)
     Route: 048
     Dates: end: 20211014
  3. COMIRNATY [Suspect]
     Active Substance: TOZINAMERAN
     Indication: COVID-19 immunisation
     Dosage: 0.3 MILLILITER (0.3 ML PRISE UNIQUE)
     Route: 030
     Dates: start: 20211014, end: 20211014
  4. DUPHALAC [Suspect]
     Active Substance: LACTULOSE
     Indication: Product used for unknown indication
     Dosage: POSOLOGIE NON CONNUE
     Route: 048
     Dates: end: 20211014

REACTIONS (1)
  - Death [Fatal]

NARRATIVE: CASE EVENT DATE: 20211015
